FAERS Safety Report 9024285 (Version 3)
Quarter: 2013Q2

REPORT INFORMATION
  Report Type: Spontaneous
  Country: IT (occurrence: IT)
  Receive Date: 20130121
  Receipt Date: 20130423
  Transmission Date: 20140414
  Serious: Yes (Other)
  Sender: FDA-Public Use
  Company Number: PHHY2013IT004869

PATIENT
  Sex: Male

DRUGS (2)
  1. ZOMETA [Suspect]
     Indication: PROSTATE CANCER STAGE IV
     Dosage: 04 MG, MONTHLY
     Route: 042
     Dates: start: 20000509, end: 20060601
  2. AREDIA [Suspect]
     Indication: PROSTATE CANCER STAGE IV
     Dosage: 90 MG, MONTHLY
     Route: 042
     Dates: start: 20001013, end: 20021110

REACTIONS (1)
  - Osteonecrosis of jaw [Not Recovered/Not Resolved]
